FAERS Safety Report 21950720 (Version 1)
Quarter: 2023Q1

REPORT INFORMATION
  Report Type: Other
  Country: CA (occurrence: CA)
  Receive Date: 20230203
  Receipt Date: 20230203
  Transmission Date: 20230418
  Serious: Yes (Other)
  Sender: FDA-Public Use
  Company Number: CA-PFIZER INC-202300046076

PATIENT
  Age: 71 Year
  Sex: Male

DRUGS (2)
  1. BEVACIZUMAB [Suspect]
     Active Substance: BEVACIZUMAB
     Indication: Cystoid macular oedema
  2. NEPAFENAC [Concomitant]
     Active Substance: NEPAFENAC
     Indication: Cystoid macular oedema
     Route: 065

REACTIONS (2)
  - Plasma cell myeloma [Unknown]
  - Off label use [Unknown]
